FAERS Safety Report 8812255 (Version 1)
Quarter: 2012Q4

REPORT INFORMATION
  Report Type: Report from Study
  Country: DE (occurrence: DE)
  Receive Date: 20120927
  Receipt Date: 20120927
  Transmission Date: 20130627
  Serious: Yes (Hospitalization)
  Sender: FDA-Public Use
  Company Number: DE-ROCHE-1115571

PATIENT
  Age: 48 Year
  Sex: Female
  Weight: 81 kg

DRUGS (5)
  1. AVASTIN [Suspect]
     Indication: OVARIAN CANCER
     Dosage: 28/08/2012 last dose prior to SAE, Daily dose-1290 mg
     Route: 042
     Dates: start: 20120314
  2. CARBOPLATIN [Suspect]
     Indication: OVARIAN CANCER
     Dosage: last date prior to SAE IS 26/06/2012
     Route: 042
     Dates: start: 20120314
  3. CARBOPLATIN [Suspect]
     Route: 042
  4. PACLITAXEL [Suspect]
     Indication: OVARIAN CANCER
     Dosage: last dose prior to SAE 26/06/2012
     Route: 042
     Dates: start: 20120314
  5. ESTRADIOL [Concomitant]
     Indication: OESTROGEN THERAPY

REACTIONS (2)
  - Infected cyst [Not Recovered/Not Resolved]
  - Pelvic abscess [Recovered/Resolved]
